FAERS Safety Report 12627196 (Version 2)
Quarter: 2016Q3

REPORT INFORMATION
  Report Type: Spontaneous
  Country: ES (occurrence: ES)
  Receive Date: 20160805
  Receipt Date: 20160808
  Transmission Date: 20161109
  Serious: Yes (Other)
  Sender: FDA-Public Use
  Company Number: ES-009507513-1607ESP012493

PATIENT
  Sex: Male

DRUGS (2)
  1. TIENAM I.V. 500 MG [Suspect]
     Active Substance: CILASTATIN SODIUM\IMIPENEM
     Indication: PANCREATITIS NECROTISING
  2. TIENAM I.V. 500 MG [Suspect]
     Active Substance: CILASTATIN SODIUM\IMIPENEM
     Indication: PANCREATITIS ACUTE
     Dosage: FORMULATION: CONCENTRATE FOR SOLUTION FOR PERFUSION, 1 G, EVERY 8 OR 6 HOURS

REACTIONS (2)
  - Psychomotor hyperactivity [Recovered/Resolved]
  - Psychotic disorder [Recovered/Resolved]

NARRATIVE: CASE EVENT DATE: 2012
